FAERS Safety Report 19827739 (Version 2)
Quarter: 2021Q3

REPORT INFORMATION
  Report Type: Report from Study
  Country: US (occurrence: US)
  Receive Date: 20210914
  Receipt Date: 20210927
  Transmission Date: 20211014
  Serious: No
  Sender: FDA-Public Use
  Company Number: US-KYOWAKIRIN-2021BKK015461

PATIENT

DRUGS (2)
  1. CRYSVITA [Suspect]
     Active Substance: BUROSUMAB-TWZA
     Indication: HEREDITARY HYPOPHOSPHATAEMIC RICKETS
     Dosage: 40 MG, Q 14 DAYS
     Route: 065
     Dates: end: 2021
  2. CRYSVITA [Suspect]
     Active Substance: BUROSUMAB-TWZA
     Dosage: 40 MG, Q 14 DAYS
     Route: 065
     Dates: start: 2021

REACTIONS (2)
  - COVID-19 [Recovered/Resolved]
  - Quarantine [Recovered/Resolved]

NARRATIVE: CASE EVENT DATE: 2021
